FAERS Safety Report 23893995 (Version 1)
Quarter: 2024Q2

REPORT INFORMATION
  Report Type: Report from Study
  Country: CL (occurrence: CL)
  Receive Date: 20240524
  Receipt Date: 20240524
  Transmission Date: 20240716
  Serious: Yes (Other)
  Sender: FDA-Public Use
  Company Number: CL-JNJFOC-20231218973

PATIENT
  Age: 45 Year
  Sex: Female

DRUGS (3)
  1. SIMPONI [Suspect]
     Active Substance: GOLIMUMAB
     Indication: Ankylosing spondylitis
     Route: 058
     Dates: start: 2017
  2. SIMPONI [Suspect]
     Active Substance: GOLIMUMAB
     Dosage: INDICATED ADMINISTRATION DATE 10-NOV-2023
     Route: 058
     Dates: start: 20200705
  3. SIMPONI [Suspect]
     Active Substance: GOLIMUMAB
     Route: 058
     Dates: start: 20200705

REACTIONS (7)
  - Ankylosing spondylitis [Unknown]
  - COVID-19 [Recovered/Resolved]
  - Adenovirus infection [Recovered/Resolved]
  - Vision blurred [Unknown]
  - Productive cough [Unknown]
  - Exposure during pregnancy [Recovered/Resolved]
  - Nasopharyngitis [Unknown]

NARRATIVE: CASE EVENT DATE: 20231101
